FAERS Safety Report 19805996 (Version 1)
Quarter: 2021Q3

REPORT INFORMATION
  Report Type: Spontaneous
  Country: US (occurrence: US)
  Receive Date: 20210908
  Receipt Date: 20210908
  Transmission Date: 20211014
  Serious: No
  Sender: FDA-Public Use
  Company Number: US-ASTELLAS-2021US017693

PATIENT
  Age: 72 Year
  Sex: Male

DRUGS (3)
  1. XTANDI [Suspect]
     Active Substance: ENZALUTAMIDE
     Indication: PRODUCT USED FOR UNKNOWN INDICATION
     Dosage: UNK UNK, UNKNOWN FREQ.
     Route: 065
  2. RELUGOLIX. [Suspect]
     Active Substance: RELUGOLIX
     Indication: PROSTATE CANCER
     Dosage: 360 MG,ONE TIME DOSE
     Route: 048
     Dates: start: 20210328, end: 20210328
  3. RELUGOLIX. [Suspect]
     Active Substance: RELUGOLIX
     Route: 048
     Dates: start: 20210329

REACTIONS (3)
  - Lethargy [Unknown]
  - Condition aggravated [Unknown]
  - Hot flush [Unknown]

NARRATIVE: CASE EVENT DATE: 20210328
